FAERS Safety Report 19271164 (Version 1)
Quarter: 2021Q2

REPORT INFORMATION
  Report Type: Spontaneous
  Country: US (occurrence: US)
  Receive Date: 20210518
  Receipt Date: 20210518
  Transmission Date: 20210717
  Serious: Yes (Other)
  Sender: FDA-Public Use
  Company Number: US-ORGANON-O2105USA000989

PATIENT
  Age: 70 Year
  Sex: Female

DRUGS (6)
  1. QUETIAPINE. [Concomitant]
     Active Substance: QUETIAPINE
     Dosage: 12.5 MG EVERY EVENING, HS
  2. ESCITALOPRAM [Concomitant]
     Active Substance: ESCITALOPRAM OXALATE
     Dosage: 20 MILLIGRAM, QD
  3. SINEMET [Suspect]
     Active Substance: CARBIDOPA\LEVODOPA
     Indication: PARKINSON^S DISEASE
     Dosage: 25/100 (UNITS NOT REPORTED)
     Route: 048
  4. SINEMET CR [Suspect]
     Active Substance: CARBIDOPA\LEVODOPA
     Indication: PARKINSON^S DISEASE
     Dosage: 25/100 (UNITS NOT REPORTED), 1.5 TABLETS AT NIGHT AND ONE TABLET AT 4 AM
     Route: 048
  5. ROPINIROLE. [Concomitant]
     Active Substance: ROPINIROLE
     Indication: PARKINSON^S DISEASE
     Dosage: 5 MILLIGRAM, TID
  6. SINEMET [Suspect]
     Active Substance: CARBIDOPA\LEVODOPA
     Dosage: 25/100 (UNITS NOT REPORTED), 10?14 TABS DAILY
     Route: 048

REACTIONS (5)
  - Drug dependence [Unknown]
  - Depression [Unknown]
  - Intentional product misuse [Unknown]
  - Withdrawal syndrome [Unknown]
  - Intentional overdose [Unknown]
